FAERS Safety Report 5107360-7 (Version None)
Quarter: 2006Q3

REPORT INFORMATION
  Report Type: 
  Country: None (occurrence: None)
  Receive Date: 20060914
  Receipt Date: 20060828
  Transmission Date: 20061208
  Serious: Yes (Death)
  Sender: FDA-Public Use
  Company Number: 2006108484

PATIENT
  Sex: Male

DRUGS (1)
  1. BEXTRA [Suspect]
     Indication: PAIN
     Dates: start: 20030630, end: 20040901

REACTIONS (4)
  - CARDIOVASCULAR DISORDER [None]
  - CORONARY ARTERY THROMBOSIS [None]
  - INJURY [None]
  - MYOCARDIAL INFARCTION [None]
